FAERS Safety Report 7564433-7 (Version None)
Quarter: 2011Q2

REPORT INFORMATION
  Report Type: 
  Country: None (occurrence: None)
  Receive Date: 20110622
  Receipt Date: 20110613
  Transmission Date: 20111010
  Serious: Yes (Other)
  Sender: FDA-Public Use
  Company Number: PHHY2011JP53137

PATIENT
  Age: 3 Year
  Sex: Female

DRUGS (1)
  1. ZADITEN [Suspect]
     Route: 048

REACTIONS (1)
  - FEBRILE CONVULSION [None]
